FAERS Safety Report 9515030 (Version 1)
Quarter: 2013Q3

REPORT INFORMATION
  Report Type: Spontaneous
  Country: US (occurrence: None)
  Receive Date: 20130909
  Receipt Date: 20130909
  Transmission Date: 20140515
  Serious: Yes (Hospitalization, Other)
  Sender: FDA-Public Use
  Company Number: AUR-APL-2013-07216

PATIENT
  Age: 27 Year
  Sex: Female

DRUGS (2)
  1. AMOXICILLIN [Suspect]
     Indication: PRODUCT USED FOR UNKNOWN INDICATION
     Dosage: UNKNOWN
  2. SULPHASALAZINE [Suspect]
     Dosage: UNKNOWN

REACTIONS (1)
  - Drug reaction with eosinophilia and systemic symptoms [None]
